FAERS Safety Report 18253559 (Version 1)
Quarter: 2020Q3

REPORT INFORMATION
  Report Type: Spontaneous
  Country: US (occurrence: US)
  Receive Date: 20200910
  Receipt Date: 20200910
  Transmission Date: 20201103
  Serious: Yes (Other)
  Sender: FDA-Public Use
  Company Number: US-AMERICAN REGENT INC-2020001836

PATIENT
  Age: 68 Year
  Sex: Male

DRUGS (3)
  1. PROPANOLOL                         /00030001/ [Suspect]
     Active Substance: PROPRANOLOL HYDROCHLORIDE
     Indication: VENTRICULAR TACHYCARDIA
     Dosage: UNK
     Route: 042
  2. LIDOCAINE HCL INJECTION, USP (0625?25) [Suspect]
     Active Substance: LIDOCAINE HYDROCHLORIDE
     Indication: VENTRICULAR TACHYCARDIA
     Dosage: UNK
     Route: 042
  3. SOTALOL. [Suspect]
     Active Substance: SOTALOL
     Indication: VENTRICULAR TACHYCARDIA
     Dosage: UNK
     Route: 042

REACTIONS (3)
  - Ventricular tachycardia [Recovered/Resolved]
  - Product use in unapproved indication [Unknown]
  - Drug ineffective for unapproved indication [Recovered/Resolved]
